FAERS Safety Report 5596206-9 (Version None)
Quarter: 2007Q4

REPORT INFORMATION
  Report Type: 
  Country: None (occurrence: None)
  Receive Date: 20071218
  Receipt Date: 20061106
  Transmission Date: 20080405
  Serious: Yes (Other)
  Sender: FDA-Public Use
  Company Number: 2006112585

PATIENT
  Age: 44 Year
  Sex: Female
  Weight: 102.5 kg

DRUGS (1)
  1. BEXTRA [Suspect]
     Indication: PAIN
     Dosage: (20 MG)
     Dates: start: 20040101

REACTIONS (1)
  - MYOCARDIAL INFARCTION [None]
